FAERS Safety Report 5243303-3 (Version None)
Quarter: 2007Q1

REPORT INFORMATION
  Report Type: 
  Country: None (occurrence: None)
  Receive Date: 20070221
  Receipt Date: 20070214
  Transmission Date: 20070707
  Serious: Yes (Hospitalization)
  Sender: FDA-Public Use
  Company Number: FR-MERCK-0702FRA00048

PATIENT
  Age: 61 Year
  Sex: Male

DRUGS (21)
  1. CANCIDAS [Suspect]
     Indication: PYREXIA
     Route: 042
     Dates: start: 20070112, end: 20070119
  2. GENTAMICIN [Suspect]
     Indication: PYREXIA
     Route: 042
     Dates: start: 20070111, end: 20070115
  3. TEICOPLANIN [Suspect]
     Indication: PYREXIA
     Route: 042
     Dates: start: 20070111, end: 20070112
  4. TEICOPLANIN [Suspect]
     Route: 042
     Dates: start: 20070118, end: 20070122
  5. PIPERACILLIN AND TAZOBACTAM [Suspect]
     Indication: PYREXIA
     Route: 042
     Dates: start: 20070111, end: 20070114
  6. PIPERACILLIN AND TAZOBACTAM [Suspect]
     Route: 042
     Dates: start: 20070118, end: 20070119
  7. TERBUTALINE SULFATE [Suspect]
     Dates: start: 20070111, end: 20070119
  8. IPRATROPIUM BROMIDE [Suspect]
     Dates: start: 20070111, end: 20070119
  9. RIFAMYCIN SODIUM [Suspect]
     Route: 047
     Dates: start: 20070112, end: 20070119
  10. VORICONAZOLE [Concomitant]
     Indication: PYREXIA
     Route: 048
     Dates: end: 20070112
  11. VALGANCICLOVIR HYDROCHLORIDE [Concomitant]
     Indication: CYTOMEGALOVIRUS INFECTION
     Route: 048
  12. AMIKACIN SULFATE [Concomitant]
     Route: 042
     Dates: start: 20070115, end: 20070118
  13. CILASTATIN SODIUM AND IMIPENEM [Concomitant]
     Route: 042
     Dates: start: 20070115, end: 20070118
  14. SULFAMETHOXAZOLE AND TRIMETHOPRIM [Concomitant]
     Route: 048
  15. AMPHOTERICIN B AND CHOLESTEROL AND DISTEAROYLPHOSPHATIDYLGLYCEROL AND [Concomitant]
     Route: 042
     Dates: start: 20070113
  16. CARBOXYMETHYLCELLULOSE SODIUM [Concomitant]
     Route: 047
     Dates: start: 20070112
  17. MYCOPHENOLATE MOFETIL [Concomitant]
     Route: 065
  18. HYDROCORTISONE [Concomitant]
     Route: 065
     Dates: end: 20070106
  19. ROPINIROLE HYDROCHLORIDE [Concomitant]
     Route: 065
  20. DOXAZOSIN MESYLATE [Concomitant]
     Indication: BENIGN PROSTATIC HYPERPLASIA
     Route: 048
  21. RISEDRONATE SODIUM [Concomitant]
     Route: 048

REACTIONS (2)
  - MUCOUS MEMBRANE DISORDER [None]
  - RASH MACULO-PAPULAR [None]
